FAERS Safety Report 9662069 (Version 2)
Quarter: 2013Q4

REPORT INFORMATION
  Report Type: Spontaneous
  Country: US (occurrence: US)
  Receive Date: 20131031
  Receipt Date: 20131031
  Transmission Date: 20140711
  Serious: Yes (Hospitalization)
  Sender: FDA-Public Use
  Company Number: US-NAPPMUNDI-USA-2010-0049209

PATIENT
  Age: 57 Year
  Sex: Female
  Weight: 68.03 kg

DRUGS (3)
  1. OXYCONTIN (NDA 22-272) [Suspect]
     Indication: INTERVERTEBRAL DISC DEGENERATION
     Dosage: 40 MG, TID
     Route: 048
     Dates: start: 20101006
  2. OXYCONTIN (NDA 22-272) [Suspect]
     Indication: SPINAL OSTEOARTHRITIS
  3. UNSPECIFIED MEDICATION [Concomitant]
     Indication: BREAKTHROUGH PAIN

REACTIONS (4)
  - Chest pain [Recovered/Resolved]
  - Hypersomnia [Recovered/Resolved]
  - Dysarthria [Recovered/Resolved]
  - Drug ineffective [Unknown]
